FAERS Safety Report 8491217-8 (Version None)
Quarter: 2012Q3

REPORT INFORMATION
  Report Type: 
  Country: None (occurrence: None)
  Receive Date: 20120706
  Receipt Date: 20120626
  Transmission Date: 20120928
  Serious: Yes (Other)
  Sender: FDA-Public Use
  Company Number: CA-JNJFOC-20120613779

PATIENT
  Sex: Female

DRUGS (3)
  1. ALESSE [Concomitant]
     Route: 065
  2. REMICADE [Suspect]
     Indication: CROHN'S DISEASE
     Route: 042
     Dates: start: 20090901
  3. REMICADE [Suspect]
     Route: 042
     Dates: start: 20120523

REACTIONS (1)
  - INTESTINAL RESECTION [None]
